FAERS Safety Report 7631039-0 (Version None)
Quarter: 2011Q3

REPORT INFORMATION
  Report Type: 
  Country: None (occurrence: None)
  Receive Date: 20110725
  Receipt Date: 20110719
  Transmission Date: 20111222
  Serious: No
  Sender: FDA-Public Use
  Company Number: US-BIOGENIDEC-2011BI026907

PATIENT
  Sex: Female

DRUGS (1)
  1. AVONEX [Suspect]
     Indication: MULTIPLE SCLEROSIS
     Route: 030
     Dates: start: 20081228

REACTIONS (6)
  - WHEEZING [None]
  - DYSPNOEA [None]
  - SINUSITIS [None]
  - RASH PAPULAR [None]
  - PRURITUS [None]
  - INFLUENZA LIKE ILLNESS [None]
